FAERS Safety Report 8838178 (Version 2)
Quarter: 2013Q1

REPORT INFORMATION
  Report Type: Spontaneous
  Country: US (occurrence: US)
  Receive Date: 20121012
  Receipt Date: 20130124
  Transmission Date: 20140127
  Serious: Yes (Other)
  Sender: FDA-Public Use
  Company Number: US-PFIZER INC-2012253911

PATIENT
  Age: 77 Year
  Sex: Female
  Weight: 84.35 kg

DRUGS (11)
  1. LYRICA [Suspect]
     Indication: SCIATICA
     Dosage: 50 MG, 2X/DAY
     Route: 048
     Dates: start: 201208, end: 201208
  2. LYRICA [Suspect]
     Indication: NEUROPATHY PERIPHERAL
     Dosage: 150 MG, UNK
     Route: 048
     Dates: start: 201208
  3. LYRICA [Suspect]
     Dosage: 50 MG, 3X/DAY
     Route: 048
  4. LYRICA [Suspect]
     Dosage: 150 MG, 2X/DAY
     Route: 048
     Dates: start: 201209, end: 201210
  5. BENICAR HCT [Concomitant]
     Dosage: 20-12.5 MG
     Route: 048
  6. DEXLANSOPRAZOLE [Concomitant]
     Dosage: UNK
  7. FOLIC ACID [Concomitant]
     Dosage: 400 UG, UNK
  8. CRESTOR [Concomitant]
     Dosage: 5 MG, UNK
     Route: 048
  9. ACETYLSALICYLIC ACID [Concomitant]
     Dosage: 81 MG, UNK
  10. COREG [Concomitant]
     Dosage: 6.25 MG, UNK
     Route: 048
  11. FOLATE [Concomitant]
     Dosage: UNK

REACTIONS (13)
  - Road traffic accident [Unknown]
  - Impaired driving ability [Unknown]
  - Spinal column stenosis [Unknown]
  - Dry mouth [Not Recovered/Not Resolved]
  - Pain [Not Recovered/Not Resolved]
  - Burning sensation [Not Recovered/Not Resolved]
  - Feeling hot [Not Recovered/Not Resolved]
  - Gait disturbance [Not Recovered/Not Resolved]
  - Fibromyalgia [Unknown]
  - Back pain [Unknown]
  - Neck pain [Unknown]
  - Sensory disturbance [Unknown]
  - Coordination abnormal [Unknown]
